FAERS Safety Report 9062153 (Version 2)
Quarter: 2013Q2

REPORT INFORMATION
  Report Type: Report from Study
  Country: AU (occurrence: AU)
  Receive Date: 20130129
  Receipt Date: 20130409
  Transmission Date: 20140414
  Serious: Yes (Hospitalization, Other)
  Sender: FDA-Public Use
  Company Number: PHHY2013AU008155

PATIENT
  Age: 36 Year
  Sex: Male

DRUGS (10)
  1. CLOZARIL [Suspect]
     Indication: SCHIZOPHRENIA
     Dosage: 175 MG, UNK
     Dates: start: 20130102, end: 20130118
  2. CLOZARIL [Suspect]
     Dosage: UNK UKN, RECOMMENCED
  3. QUETIAPINE [Concomitant]
     Dosage: 200 MG, MANE
     Route: 048
  4. QUETIAPINE [Concomitant]
     Dosage: 650 MG, NOCTE
     Route: 048
  5. ATORVASTATIN [Concomitant]
     Dosage: 10 MG, MANE
     Route: 048
  6. LORAZEPAM [Concomitant]
     Dosage: 2 MG, TDS
     Route: 048
  7. LORAZEPAM [Concomitant]
     Dosage: 1-2 MG, 8/24 PRN
     Route: 048
  8. PARACETAMOL [Concomitant]
     Dosage: 1 G, QID
     Route: 048
  9. METOCLOPRAMIDE [Concomitant]
     Dosage: 10 MG, TDS
     Route: 048
  10. ANTIDEPRESSANTS [Concomitant]

REACTIONS (20)
  - Myocarditis [Recovered/Resolved]
  - Pyrexia [Recovered/Resolved]
  - Hyperthermia [Recovered/Resolved]
  - Troponin increased [Unknown]
  - Asthma [Unknown]
  - Blood pressure abnormal [Recovered/Resolved]
  - Lethargy [Unknown]
  - Post-traumatic stress disorder [Unknown]
  - C-reactive protein increased [Unknown]
  - Red blood cell sedimentation rate increased [Unknown]
  - Tachycardia [Unknown]
  - Hypertension [Unknown]
  - White blood cell count increased [Recovered/Resolved]
  - Fatigue [Unknown]
  - Nausea [Unknown]
  - Vomiting [Unknown]
  - Hypercholesterolaemia [Unknown]
  - Diarrhoea [Unknown]
  - Tremor [Unknown]
  - Blood pressure systolic increased [Unknown]
